FAERS Safety Report 13287058 (Version 2)
Quarter: 2017Q2

REPORT INFORMATION
  Report Type: Report from Study
  Country: DE (occurrence: DE)
  Receive Date: 20170302
  Receipt Date: 20170411
  Transmission Date: 20170830
  Serious: Yes (Other)
  Sender: FDA-Public Use
  Company Number: DE-BAYER-2017-038253

PATIENT
  Age: 23 Year
  Sex: Female
  Weight: 72.5 kg

DRUGS (2)
  1. YASMIN [Suspect]
     Active Substance: DROSPIRENONE\ETHINYL ESTRADIOL
     Indication: CONTRACEPTION
     Dosage: UNK
     Route: 048
     Dates: start: 201308, end: 201609
  2. CHLORMADINONE ACETATE + ETHINYLESTRADIOL [Suspect]
     Active Substance: CHLORMADINONE ACETATE\ETHINYL ESTRADIOL
     Dosage: UNK

REACTIONS (7)
  - Peripheral swelling [None]
  - Factor V Leiden mutation [None]
  - Feeling hot [None]
  - Musculoskeletal stiffness [None]
  - Deep vein thrombosis [None]
  - Muscular weakness [None]
  - Limb discomfort [None]

NARRATIVE: CASE EVENT DATE: 20160901
